FAERS Safety Report 14860547 (Version 1)
Quarter: 2018Q2

REPORT INFORMATION
  Report Type: Spontaneous
  Country: FR (occurrence: FR)
  Receive Date: 20180508
  Receipt Date: 20180508
  Transmission Date: 20180711
  Serious: Yes (Other)
  Sender: FDA-Public Use
  Company Number: FR-MERCK KGAA-2047402

PATIENT
  Age: 54 Year
  Sex: Female

DRUGS (1)
  1. NOVOTHYROX [Suspect]
     Active Substance: LEVOTHYROXINE SODIUM
     Indication: AUTOIMMUNE THYROIDITIS

REACTIONS (31)
  - Swelling [None]
  - Partner stress [None]
  - Somnolence [None]
  - Escherichia test positive [None]
  - Blood thyroid stimulating hormone decreased [None]
  - Alopecia [None]
  - Diarrhoea [None]
  - Fatigue [None]
  - Dyspnoea [None]
  - Daydreaming [None]
  - Visual acuity reduced [None]
  - Asthenia [None]
  - Social avoidant behaviour [None]
  - White blood cells urine positive [None]
  - Amnesia [None]
  - Libido decreased [None]
  - Nausea [None]
  - Heat stroke [None]
  - Gastrointestinal disorder [None]
  - Paraesthesia [None]
  - Hypotension [None]
  - Urinary tract infection [None]
  - Dry skin [None]
  - Disturbance in attention [None]
  - Intestinal transit time abnormal [None]
  - Chills [None]
  - Constipation [None]
  - Sleep disorder [None]
  - Headache [None]
  - Impaired work ability [None]
  - Red blood cells urine positive [None]

NARRATIVE: CASE EVENT DATE: 20170201
